FAERS Safety Report 7775723-7 (Version None)
Quarter: 2011Q3

REPORT INFORMATION
  Report Type: 
  Country: None (occurrence: None)
  Receive Date: 20110923
  Receipt Date: 20110919
  Transmission Date: 20111222
  Serious: Yes (Life-Threatening)
  Sender: FDA-Public Use
  Company Number: FR-GLAXOSMITHKLINE-B0748311A

PATIENT
  Sex: Male

DRUGS (5)
  1. PAROXETINE HCL [Suspect]
     Indication: DEPRESSION
     Route: 048
     Dates: start: 20110812, end: 20110901
  2. RISPERDAL [Suspect]
     Indication: PSYCHOTIC DISORDER
     Dosage: 4MG UNKNOWN
     Route: 048
     Dates: start: 20110825, end: 20110828
  3. LEXOMIL [Suspect]
     Indication: DEPRESSION
     Dosage: 3UNIT PER DAY
     Route: 048
     Dates: end: 20110830
  4. ATARAX [Suspect]
     Indication: DEPRESSION
     Dosage: 50MG TWICE PER DAY
     Route: 048
     Dates: end: 20110901
  5. IMOVANE [Suspect]
     Indication: DEPRESSION
     Dosage: 7.5MG PER DAY
     Route: 048
     Dates: start: 20110825, end: 20110829

REACTIONS (12)
  - OXYGEN SATURATION DECREASED [None]
  - PULMONARY EMBOLISM [None]
  - HYPOXIA [None]
  - DYSKINESIA [None]
  - DYSARTHRIA [None]
  - RESPIRATORY DISTRESS [None]
  - EXTRAPYRAMIDAL DISORDER [None]
  - PYREXIA [None]
  - HYPERTONIA [None]
  - AKINESIA [None]
  - FALL [None]
  - NEUROLEPTIC MALIGNANT SYNDROME [None]
